FAERS Safety Report 8498039-2 (Version None)
Quarter: 2012Q3

REPORT INFORMATION
  Report Type: 
  Country: None (occurrence: None)
  Receive Date: 20120709
  Receipt Date: 20120618
  Transmission Date: 20120928
  Serious: No
  Sender: FDA-Public Use
  Company Number: US-AMGEN-USASP2012004054

PATIENT
  Age: 64 Year
  Sex: Female

DRUGS (3)
  1. ASPIRIN [Concomitant]
     Dosage: 1 MG, UNK
  2. ENBREL [Suspect]
     Indication: RHEUMATOID ARTHRITIS
     Dosage: 50 MG, QWK
     Dates: start: 20110401
  3. VITAMIN D [Concomitant]
     Dosage: UNK

REACTIONS (10)
  - EYE DISORDER [None]
  - CONDITION AGGRAVATED [None]
  - INJECTION SITE ERYTHEMA [None]
  - DRY SKIN [None]
  - INJECTION SITE SWELLING [None]
  - INJECTION SITE MASS [None]
  - HEADACHE [None]
  - INJECTION SITE PRURITUS [None]
  - BLOOD TEST ABNORMAL [None]
  - WEIGHT DECREASED [None]
